FAERS Safety Report 18866101 (Version 1)
Quarter: 2021Q1

REPORT INFORMATION
  Report Type: Spontaneous
  Country: US (occurrence: US)
  Receive Date: 20210209
  Receipt Date: 20210209
  Transmission Date: 20210420
  Serious: Yes (Hospitalization)
  Sender: FDA-Public Use
  Company Number: None

PATIENT
  Age: 66 Year
  Sex: Female
  Weight: 108.86 kg

DRUGS (1)
  1. BAMLANIVIMAB 700MG IV [Suspect]
     Active Substance: BAMLANIVIMAB
     Indication: COVID-19
     Route: 042

REACTIONS (3)
  - Body temperature increased [None]
  - Oxygen saturation abnormal [None]
  - Dyspnoea [None]

NARRATIVE: CASE EVENT DATE: 20210208
